FAERS Safety Report 10415353 (Version 1)
Quarter: 2014Q3

REPORT INFORMATION
  Report Type: Spontaneous
  Country: US (occurrence: US)
  Receive Date: 20140828
  Receipt Date: 20140828
  Transmission Date: 20150326
  Serious: No
  Sender: FDA-Public Use
  Company Number: US-PFIZER INC-2014235805

PATIENT
  Sex: Female

DRUGS (1)
  1. TOVIAZ [Suspect]
     Active Substance: FESOTERODINE FUMARATE
     Dosage: UNK
     Dates: start: 201408

REACTIONS (4)
  - Nipple pain [Unknown]
  - Abdominal distension [Unknown]
  - Dry mouth [Unknown]
  - Nipple disorder [Unknown]

NARRATIVE: CASE EVENT DATE: 201408
